FAERS Safety Report 12957872 (Version 1)
Quarter: 2016Q4

REPORT INFORMATION
  Report Type: Spontaneous
  Country: GB (occurrence: GB)
  Receive Date: 20161118
  Receipt Date: 20161118
  Transmission Date: 20170207
  Serious: Yes (Other)
  Sender: FDA-Public Use
  Company Number: GB-ALLERGAN-1676693US

PATIENT
  Age: 55 Year
  Sex: Male
  Weight: 65 kg

DRUGS (6)
  1. CITALOPRAM HYDROBROMIDE - BP [Suspect]
     Active Substance: CITALOPRAM HYDROBROMIDE
     Indication: ANXIETY
     Dosage: 40 MG, QD
     Route: 065
     Dates: start: 20131107, end: 201601
  2. PREGABALIN. [Suspect]
     Active Substance: PREGABALIN
     Indication: HEADACHE
     Dosage: 75 MG, QD
     Route: 065
     Dates: end: 201501
  3. AMITRIPTYLINE-GENERIC [Concomitant]
     Active Substance: AMITRIPTYLINE
     Indication: HEADACHE
     Dosage: 25 MG DAILY
     Route: 048
     Dates: start: 20151106
  4. VENLAFAXINE [Concomitant]
     Active Substance: VENLAFAXINE HYDROCHLORIDE
     Indication: PRODUCT USED FOR UNKNOWN INDICATION
     Dosage: 75 MG ONCE DAILY
     Route: 065
  5. VENLAFAXINE [Concomitant]
     Active Substance: VENLAFAXINE HYDROCHLORIDE
     Dosage: 75 MG TWICE DAILY
     Route: 065
  6. PREGABALIN. [Suspect]
     Active Substance: PREGABALIN
     Dosage: 600 MG, QD
     Route: 065
     Dates: start: 20141030, end: 20150101

REACTIONS (19)
  - Urinary hesitation [Unknown]
  - Suicidal ideation [Unknown]
  - Anxiety [Unknown]
  - Depression [Unknown]
  - Urinary retention [Unknown]
  - Impaired work ability [Unknown]
  - Drug ineffective for unapproved indication [Unknown]
  - Panic attack [Unknown]
  - Condition aggravated [Unknown]
  - Fear [Unknown]
  - Withdrawal syndrome [Unknown]
  - Muscle twitching [Recovering/Resolving]
  - Dizziness [Unknown]
  - Cardiac disorder [Unknown]
  - Palpitations [Unknown]
  - Tremor [Unknown]
  - Inhibitory drug interaction [Unknown]
  - Paraesthesia [Recovered/Resolved]
  - Insomnia [Not Recovered/Not Resolved]

NARRATIVE: CASE EVENT DATE: 20141222
